APPROVED DRUG PRODUCT: CYCLOPENTOLATE HYDROCHLORIDE
Active Ingredient: CYCLOPENTOLATE HYDROCHLORIDE
Strength: 0.5%
Dosage Form/Route: SOLUTION/DROPS;OPHTHALMIC
Application: A205937 | Product #001
Applicant: SCIEGEN PHARMACEUTICALS INC
Approved: Dec 9, 2015 | RLD: No | RS: No | Type: DISCN